FAERS Safety Report 22075027 (Version 1)
Quarter: 2023Q1

REPORT INFORMATION
  Report Type: Spontaneous
  Country: AU (occurrence: None)
  Receive Date: 20230308
  Receipt Date: 20230308
  Transmission Date: 20230418
  Serious: Yes (Other)
  Sender: FDA-Public Use
  Company Number: 2023A049249

PATIENT
  Age: 62 Year
  Sex: Female

DRUGS (4)
  1. BYETTA [Suspect]
     Active Substance: EXENATIDE
  2. EYLEA [Suspect]
     Active Substance: AFLIBERCEPT
  3. INSULIN NOS [Suspect]
     Active Substance: INSULIN NOS
  4. RISPERIDONE [Suspect]
     Active Substance: RISPERIDONE

REACTIONS (21)
  - Optic nerve injury [Unknown]
  - Epistaxis [Unknown]
  - Abdominal distension [Unknown]
  - Arthralgia [Unknown]
  - Blood glucose fluctuation [Unknown]
  - Decreased appetite [Unknown]
  - Diarrhoea [Unknown]
  - Drug ineffective [Unknown]
  - Flatulence [Unknown]
  - Fluid retention [Unknown]
  - Hallucination, visual [Unknown]
  - Joint effusion [Unknown]
  - Limb discomfort [Unknown]
  - Nocturia [Unknown]
  - Ocular procedural complication [Unknown]
  - Poor quality sleep [Unknown]
  - Somnolence [Unknown]
  - Stress [Unknown]
  - Vision blurred [Unknown]
  - Vitreous floaters [Unknown]
  - Vomiting [Unknown]
